FAERS Safety Report 4692752-0 (Version None)
Quarter: 2005Q2

REPORT INFORMATION
  Report Type: 
  Country: None (occurrence: None)
  Receive Date: 20050617
  Receipt Date: 20050609
  Transmission Date: 20051028
  Serious: Yes (Hospitalization)
  Sender: FDA-Public Use
  Company Number: FR-GLAXOSMITHKLINE-B0384475A

PATIENT
  Age: 7 Month
  Sex: Male
  Weight: 8 kg

DRUGS (4)
  1. AUGMENTIN '125' [Suspect]
     Route: 048
     Dates: start: 20050429, end: 20050503
  2. BRONCHORECTINE [Suspect]
     Route: 048
     Dates: start: 20050426, end: 20050503
  3. PNEUMOREL [Suspect]
     Route: 048
     Dates: start: 20050426, end: 20050503
  4. RHINOTROPHYL [Suspect]
     Route: 045
     Dates: start: 20050426, end: 20050503

REACTIONS (3)
  - EAR HAEMORRHAGE [None]
  - IDIOPATHIC THROMBOCYTOPENIC PURPURA [None]
  - SKIN DISORDER [None]
